FAERS Safety Report 25778142 (Version 1)
Quarter: 2025Q3

REPORT INFORMATION
  Report Type: Spontaneous
  Country: US (occurrence: None)
  Receive Date: 20250907
  Receipt Date: 20250907
  Transmission Date: 20251020
  Serious: Yes (unspecified)
  Sender: FDA-CTU
  Company Number: None

PATIENT
  Age: 59 Year
  Sex: Male
  Weight: 92.25 kg

DRUGS (4)
  1. ROSUVASTATIN [Suspect]
     Active Substance: ROSUVASTATIN
     Indication: Low density lipoprotein increased
     Route: 048
     Dates: start: 20250716, end: 20250720
  2. Losartan 500 mg [Concomitant]
  3. Turmeric daily [Concomitant]
  4. multivitamin for over-50 men. [Concomitant]

REACTIONS (2)
  - Non-small cell lung cancer [None]
  - Therapy cessation [None]

NARRATIVE: CASE EVENT DATE: 20250719
